FAERS Safety Report 7859944-0 (Version None)
Quarter: 2011Q4

REPORT INFORMATION
  Report Type: 
  Country: None (occurrence: None)
  Receive Date: 20111021
  Receipt Date: 20101103
  Transmission Date: 20120403
  Serious: Yes (Hospitalization, Other)
  Sender: FDA-Public Use
  Company Number: 2011030074

PATIENT
  Age: 13 Month

DRUGS (1)
  1. VIVAGLOBIN [Suspect]
     Indication: HYPOGAMMAGLOBULINAEMIA
     Dosage: 6.4 G 1X/MONTH, INFUSED WEEKLY IN 2 SITES OVER 3-5 MINUTES SUBCUTANEOUS
     Route: 058
     Dates: start: 20061031

REACTIONS (2)
  - STAPHYLOCOCCAL INFECTION [None]
  - FURUNCLE [None]
